FAERS Safety Report 5143699-7 (Version None)
Quarter: 2006Q4

REPORT INFORMATION
  Report Type: 
  Country: None (occurrence: None)
  Receive Date: 20061103
  Receipt Date: 20061027
  Transmission Date: 20070319
  Serious: Yes (Life-Threatening, Hospitalization, Disabling, Other)
  Sender: FDA-Public Use
  Company Number: GB-ABBOTT-06P-167-0348418-00

PATIENT
  Age: 31 Year
  Sex: Female

DRUGS (1)
  1. REDUCTIL [Suspect]
     Indication: DRUG USE FOR UNKNOWN INDICATION
     Route: 048

REACTIONS (1)
  - STEVENS-JOHNSON SYNDROME [None]
